FAERS Safety Report 7324371-1 (Version None)
Quarter: 2011Q1

REPORT INFORMATION
  Report Type: 
  Country: None (occurrence: None)
  Receive Date: 20110218
  Receipt Date: 20110210
  Transmission Date: 20110831
  Serious: Yes (Life-Threatening, Other)
  Sender: FDA-Public Use
  Company Number: 2011SP000458

PATIENT
  Age: 53 Year
  Sex: Female

DRUGS (15)
  1. ZOLPIDEM [Concomitant]
  2. CRESTOR [Concomitant]
  3. CLONAZEPAM [Concomitant]
  4. DILAUDID [Concomitant]
  5. TOPIRAMATE [Concomitant]
  6. RIBAVIRIN [Suspect]
     Indication: HEPATITIS C
     Dates: start: 20100923
  7. PEG-INTRON [Suspect]
     Indication: HEPATITIS C
     Dosage: QW
     Dates: start: 20100923
  8. RANOLAZINE [Concomitant]
  9. AGGRENOX [Concomitant]
  10. OMEPRAZOLE [Concomitant]
  11. DULOXETINE [Concomitant]
  12. BUSPAR [Concomitant]
  13. LEVAQUIN [Concomitant]
  14. SEROQUEL [Concomitant]
  15. FENTANYL [Concomitant]

REACTIONS (4)
  - CHRONIC OBSTRUCTIVE PULMONARY DISEASE [None]
  - CONDITION AGGRAVATED [None]
  - THERAPEUTIC RESPONSE DECREASED [None]
  - CENTRAL OBESITY [None]
